FAERS Safety Report 6624182-6 (Version None)
Quarter: 2010Q1

REPORT INFORMATION
  Report Type: 
  Country: None (occurrence: None)
  Receive Date: 20100310
  Receipt Date: 20091029
  Transmission Date: 20100710
  Serious: No
  Sender: FDA-Public Use
  Company Number: US-BIOGENIDEC-2009BI034953

PATIENT
  Age: 28 Year
  Sex: Female

DRUGS (2)
  1. AVONEX [Suspect]
     Indication: MULTIPLE SCLEROSIS
     Route: 030
     Dates: start: 20090907, end: 20090907
  2. AVONEX [Suspect]
     Route: 030
     Dates: start: 20091005

REACTIONS (4)
  - ASTHENOPIA [None]
  - HEADACHE [None]
  - HYPOAESTHESIA [None]
  - VOMITING [None]
